FAERS Safety Report 14026165 (Version 2)
Quarter: 2018Q1

REPORT INFORMATION
  Report Type: Spontaneous
  Country: IT (occurrence: IT)
  Receive Date: 20170929
  Receipt Date: 20180206
  Transmission Date: 20180508
  Serious: Yes (Hospitalization)
  Sender: FDA-Public Use
  Company Number: IT-ROCHE-1999617

PATIENT
  Age: 50 Year
  Sex: Male

DRUGS (5)
  1. DIAZEPAM. [Suspect]
     Active Substance: DIAZEPAM
     Indication: INTENTIONAL SELF-INJURY
     Dosage: DATE OF MOST RECENT DOSE: 27/APR/2017
     Route: 048
     Dates: start: 20170427
  2. STILNOX [Interacting]
     Active Substance: ZOLPIDEM TARTRATE
     Indication: INTENTIONAL SELF-INJURY
     Dosage: DATE OF MOST RECENT DOSE: 27/APR/2017?10 MG FILM-COATED TABLETS^ 30 TABLETS
     Route: 048
     Dates: start: 20170427
  3. TALOFEN [Interacting]
     Active Substance: PROMAZINE HYDROCHLORIDE
     Indication: INTENTIONAL SELF-INJURY
     Dosage: DATE OF MOST RECENT DOSE: 27/APR/2017, ?4 G/100 ML ORAL DROPS, SOLUTION 30 ML BOTTLE
     Route: 048
     Dates: start: 20170427
  4. GABAPENTIN. [Interacting]
     Active Substance: GABAPENTIN
     Indication: INTENTIONAL SELF-INJURY
     Dosage: DATE OF MOST RECENT DOSE: 27/APR/2017
     Route: 048
     Dates: start: 20170427
  5. NOZINAN [Interacting]
     Active Substance: LEVOMEPROMAZINE
     Indication: INTENTIONAL SELF-INJURY
     Dosage: DATE OF MOST RECENT DOSE: 27/APR/2017?100 MG FILM-COATED TABLETS 20 TABLETS
     Route: 048
     Dates: start: 20170427

REACTIONS (6)
  - Alcohol interaction [Unknown]
  - Bradypnoea [Unknown]
  - Electrocardiogram QT prolonged [Unknown]
  - Drug abuse [Unknown]
  - Coma [Unknown]
  - Hypoxia [Unknown]

NARRATIVE: CASE EVENT DATE: 20170427
